FAERS Safety Report 6198815-5 (Version None)
Quarter: 2009Q2

REPORT INFORMATION
  Report Type: 
  Country: None (occurrence: None)
  Receive Date: 20090522
  Receipt Date: 20090514
  Transmission Date: 20091009
  Serious: Yes (Other)
  Sender: FDA-Public Use
  Company Number: US-CELGENEUS-163-20785-09051154

PATIENT
  Sex: Male

DRUGS (2)
  1. THALOMID [Suspect]
     Indication: MULTIPLE MYELOMA
     Route: 048
     Dates: start: 20030801
  2. THALOMID [Suspect]
     Dosage: 200-400-500MG
     Route: 048
     Dates: start: 20011001

REACTIONS (4)
  - CARDIAC DISORDER [None]
  - LIVER FUNCTION TEST ABNORMAL [None]
  - NAUSEA [None]
  - WEIGHT DECREASED [None]
